FAERS Safety Report 25631363 (Version 1)
Quarter: 2025Q3

REPORT INFORMATION
  Report Type: Spontaneous
  Country: US (occurrence: US)
  Receive Date: 20250801
  Receipt Date: 20250801
  Transmission Date: 20251021
  Serious: Yes (Other)
  Sender: AUROBINDO
  Company Number: US-AUROBINDO-AUR-APL-2025-039208

PATIENT
  Age: 42 Year
  Sex: Female

DRUGS (3)
  1. FLECAINIDE [Suspect]
     Active Substance: FLECAINIDE
     Indication: Supraventricular tachycardia
     Dosage: 50 MILLIGRAM, TWO TIMES A DAY
     Route: 065
  2. ADENOSINE [Concomitant]
     Active Substance: ADENOSINE
     Indication: Supraventricular tachycardia
     Route: 065
  3. ISOPROTERENOL [Suspect]
     Active Substance: ISOPROTERENOL
     Indication: Arrhythmia
     Route: 065

REACTIONS (1)
  - Drug ineffective [Unknown]
